FAERS Safety Report 4693987-3 (Version None)
Quarter: 2005Q2

REPORT INFORMATION
  Report Type: 
  Country: None (occurrence: None)
  Receive Date: 20050616
  Receipt Date: 20050608
  Transmission Date: 20051028
  Serious: Yes (Other)
  Sender: FDA-Public Use
  Company Number: 2005086055

PATIENT
  Sex: 0

DRUGS (1)
  1. CADUET [Suspect]
     Indication: BLOOD PRESSURE
     Dates: start: 20050105

REACTIONS (3)
  - BLOOD TEST ABNORMAL [None]
  - HEPATIC NEOPLASM [None]
  - HEPATOMEGALY [None]
